FAERS Safety Report 11222820 (Version 1)
Quarter: 2015Q2

REPORT INFORMATION
  Report Type: Report from Study
  Country: RO (occurrence: RO)
  Receive Date: 20150626
  Receipt Date: 20150626
  Transmission Date: 20150821
  Serious: Yes (Death)
  Sender: FDA-Public Use
  Company Number: RO-ABBVIE-15P-135-1415161-00

PATIENT
  Age: 80 Year
  Sex: Female

DRUGS (8)
  1. LEPONEX [Concomitant]
     Active Substance: CLOZAPINE
     Indication: DEMENTIA
     Dosage: 0-0-1/2
  2. XANAX [Concomitant]
     Active Substance: ALPRAZOLAM
     Indication: DEMENTIA
     Dosage: 1-0-1
  3. BROMAZEPAM [Concomitant]
     Active Substance: BROMAZEPAM
     Indication: DEMENTIA
     Dosage: 0-0-1
  4. MOTILIUM [Concomitant]
     Active Substance: DOMPERIDONE
     Indication: PULMONARY FIBROSIS
  5. OXYGEN. [Concomitant]
     Active Substance: OXYGEN
     Indication: PULMONARY FIBROSIS
     Dosage: INTERMITTENT
  6. DUODOPA [Suspect]
     Active Substance: CARBIDOPA\LEVODOPA
     Indication: PARKINSON^S DISEASE
     Dosage: 16 H/ MD: 7, CR 1.8, ED 1.5
     Route: 065
     Dates: start: 20150412, end: 20150623
  7. MOTILIUM [Concomitant]
     Active Substance: DOMPERIDONE
     Indication: EMPHYSEMA
  8. OXYGEN. [Concomitant]
     Active Substance: OXYGEN
     Indication: EMPHYSEMA

REACTIONS (1)
  - Cardio-respiratory arrest [Fatal]

NARRATIVE: CASE EVENT DATE: 20150623
